FAERS Safety Report 6939274-1 (Version None)
Quarter: 2010Q3

REPORT INFORMATION
  Report Type: 
  Country: None (occurrence: None)
  Receive Date: 20100824
  Receipt Date: 20100810
  Transmission Date: 20110219
  Serious: Yes (Other)
  Sender: FDA-Public Use
  Company Number: US-JNJFOC-20100804447

PATIENT

DRUGS (1)
  1. INFLIXIMAB, RECOMBINANT [Suspect]
     Indication: CROHN'S DISEASE
     Dosage: TOOK IT FOR 33 WEEKS
     Route: 042

REACTIONS (2)
  - ILEAL STENOSIS [None]
  - THERAPEUTIC RESPONSE DECREASED [None]
